FAERS Safety Report 5158532-7 (Version None)
Quarter: 2006Q4

REPORT INFORMATION
  Report Type: 
  Country: None (occurrence: None)
  Receive Date: 20061128
  Receipt Date: 20060718
  Transmission Date: 20070319
  Serious: Yes (Other)
  Sender: FDA-Public Use
  Company Number: 2006UW14662

PATIENT
  Age: 62 Year
  Sex: Female
  Weight: 60 kg

DRUGS (4)
  1. ARIMIDEX [Suspect]
     Indication: BREAST CANCER FEMALE
     Route: 048
     Dates: start: 20010601, end: 20060515
  2. TAMOXIFEN CITRATE [Concomitant]
     Route: 048
  3. CHEMOTHERAPY [Concomitant]
  4. PACLITAXEL [Concomitant]

REACTIONS (8)
  - ASTHENIA [None]
  - DIABETES INSIPIDUS [None]
  - HAEMATOCHEZIA [None]
  - INSOMNIA [None]
  - MUSCULAR WEAKNESS [None]
  - POLYDIPSIA [None]
  - POLYURIA [None]
  - SYNCOPE [None]
